FAERS Safety Report 18666838 (Version 1)
Quarter: 2020Q4

REPORT INFORMATION
  Report Type: Report from Study
  Country: None (occurrence: IL)
  Receive Date: 20201227
  Receipt Date: 20201227
  Transmission Date: 20210114
  Serious: Yes (Hospitalization, Other)
  Sender: FDA-Public Use
  Company Number: IL-ABBVIE-20K-082-3707930-00

PATIENT
  Sex: Female

DRUGS (3)
  1. HUMIRA [Suspect]
     Active Substance: ADALIMUMAB
     Indication: CROHN^S DISEASE
     Route: 058
  2. HUMIRA [Suspect]
     Active Substance: ADALIMUMAB
     Indication: CROHN^S DISEASE
     Route: 058
     Dates: start: 20130908, end: 2014
  3. HUMIRA [Suspect]
     Active Substance: ADALIMUMAB
     Route: 058
     Dates: start: 2014

REACTIONS (8)
  - Delivery [Unknown]
  - Gestational diabetes [Recovered/Resolved]
  - Injection site pain [Recovered/Resolved]
  - Maternal exposure during pregnancy [Unknown]
  - Pre-eclampsia [Recovered/Resolved]
  - Induced labour [Unknown]
  - Live birth [Unknown]
  - Drug ineffective [Unknown]
